FAERS Safety Report 14830730 (Version 1)
Quarter: 2018Q2

REPORT INFORMATION
  Report Type: Spontaneous
  Country: US (occurrence: US)
  Receive Date: 20180430
  Receipt Date: 20180430
  Transmission Date: 20180711
  Serious: No
  Sender: FDA-Public Use
  Company Number: US-SA-2018SA099088

PATIENT
  Age: 63 Year
  Sex: Female

DRUGS (2)
  1. PRALUENT [Suspect]
     Active Substance: ALIROCUMAB
     Indication: HYPERLIPIDAEMIA
     Route: 058
  2. ALIROCUMAB PREFILLED PEN [Suspect]
     Active Substance: ALIROCUMAB
     Indication: HYPERLIPIDAEMIA

REACTIONS (6)
  - Feeling abnormal [Unknown]
  - Pain [Unknown]
  - Balance disorder [Unknown]
  - Pyrexia [Unknown]
  - Pain in extremity [Unknown]
  - Initial insomnia [Unknown]

NARRATIVE: CASE EVENT DATE: 20180324
